FAERS Safety Report 10006211 (Version 4)
Quarter: 2014Q2

REPORT INFORMATION
  Report Type: Spontaneous
  Country: JP (occurrence: JP)
  Receive Date: 20140313
  Receipt Date: 20140515
  Transmission Date: 20141212
  Serious: Yes (Other)
  Sender: FDA-Public Use
  Company Number: JP-PFIZER INC-2014072493

PATIENT
  Age: 8 Decade
  Sex: Male

DRUGS (10)
  1. CELECOX [Suspect]
     Dosage: 100 MG, DAILY
     Route: 048
     Dates: start: 20130624, end: 201309
  2. LOXONIN [Concomitant]
     Dosage: UNK
     Dates: end: 20130623
  3. LIPITOR [Concomitant]
     Dosage: UNK
  4. HARNAL [Concomitant]
     Dosage: UNK
  5. LEUPLIN [Concomitant]
     Dosage: UNK
     Dates: start: 20090801
  6. BAYASPIRIN [Concomitant]
     Dosage: UNK
  7. BLOPRESS [Concomitant]
     Dosage: UNK
  8. TAKEPRON [Concomitant]
     Dosage: UNK
  9. MUCOSTA [Concomitant]
     Dosage: UNK
     Route: 048
  10. CONIEL [Concomitant]
     Indication: PROSTATE CANCER
     Dosage: UNK
     Dates: end: 201401

REACTIONS (3)
  - Electrocardiogram QT prolonged [Recovered/Resolved]
  - Blood potassium decreased [Recovered/Resolved]
  - Intentional product misuse [Unknown]
